FAERS Safety Report 22225123 (Version 1)
Quarter: 2023Q2

REPORT INFORMATION
  Report Type: Spontaneous
  Country: US (occurrence: None)
  Receive Date: 20230417
  Receipt Date: 20230417
  Transmission Date: 20230721
  Serious: Yes (Hospitalization)
  Sender: FDA-Public Use
  Company Number: None

PATIENT
  Sex: Female

DRUGS (7)
  1. MYCOPHENOLATE MOFETIL [Suspect]
     Active Substance: MYCOPHENOLATE MOFETIL
     Indication: Renal transplant
     Route: 048
     Dates: start: 20221011
  2. BACTRIM DS [Concomitant]
     Active Substance: SULFAMETHOXAZOLE\TRIMETHOPRIM
  3. NYSTATIN [Concomitant]
     Active Substance: NYSTATIN
  4. PHOSPHORUS [Concomitant]
     Active Substance: PHOSPHORUS
  5. PREDNISONE [Concomitant]
     Active Substance: PREDNISONE
  6. TACROLIMUS [Concomitant]
     Active Substance: TACROLIMUS
  7. VALGANCICLOV [Concomitant]

REACTIONS (1)
  - Biopsy kidney [None]
